FAERS Safety Report 8832979 (Version 3)
Quarter: 2014Q2

REPORT INFORMATION
  Report Type: Spontaneous
  Country: US (occurrence: US)
  Receive Date: 20121010
  Receipt Date: 20140529
  Transmission Date: 20141212
  Serious: Yes (Other)
  Sender: FDA-Public Use
  Company Number: US-PFIZER INC-2012250890

PATIENT
  Age: 44 Year
  Sex: Female
  Weight: 115.65 kg

DRUGS (4)
  1. EFFEXOR XR [Suspect]
     Indication: MAJOR DEPRESSION
     Dosage: 300 MG (2 CAPSULES OF 150MG), DAILY
     Dates: start: 2007
  2. EFFEXOR XR [Suspect]
     Indication: GENERALISED ANXIETY DISORDER
  3. METFORMIN [Concomitant]
     Indication: GLUCOSE TOLERANCE IMPAIRED
     Dosage: 500 MG, 2X/DAY
  4. LOZOL [Concomitant]
     Indication: HYPERTENSION
     Dosage: 1.25 MG, DAILY

REACTIONS (1)
  - Obesity [Unknown]
